FAERS Safety Report 6145380-4 (Version None)
Quarter: 2009Q2

REPORT INFORMATION
  Report Type: 
  Country: None (occurrence: None)
  Receive Date: 20090402
  Receipt Date: 20090323
  Transmission Date: 20091009
  Serious: Yes (Other)
  Sender: FDA-Public Use
  Company Number: CHPA2009US07866

PATIENT
  Age: 20 Year
  Sex: Male
  Weight: 83.9 kg

DRUGS (1)
  1. EXCEDRIN (MIGRAINE) [Suspect]
     Indication: HEADACHE
     Dosage: 16 DF, QD, ORAL
     Route: 048
     Dates: start: 20090323, end: 20090323

REACTIONS (3)
  - DYSPNOEA [None]
  - OVERDOSE [None]
  - PHARYNGEAL OEDEMA [None]
